FAERS Safety Report 15983853 (Version 1)
Quarter: 2019Q1

REPORT INFORMATION
  Report Type: Spontaneous
  Country: IN (occurrence: IN)
  Receive Date: 20190220
  Receipt Date: 20190220
  Transmission Date: 20190418
  Serious: Yes (Other)
  Sender: FDA-Public Use
  Company Number: IN-MACLEODS PHARMACEUTICALS US LTD-MAC2019020157

PATIENT

DRUGS (3)
  1. TRAMADOL / ACETAMINOPHEN [Suspect]
     Active Substance: ACETAMINOPHEN\TRAMADOL
     Dosage: PARACETAMOL 325 MG, TRAMADOL 37.5 MG, INCREASED IT TO 3-4 TABLETS/DAY
     Route: 048
  2. TRAMADOL / ACETAMINOPHEN [Suspect]
     Active Substance: ACETAMINOPHEN\TRAMADOL
     Indication: PROCEDURAL PAIN
     Dosage: PARACETAMOL 325 MG, TRAMADOL 37.5 MG
     Route: 048
  3. TRAMADOL / ACETAMINOPHEN [Suspect]
     Active Substance: ACETAMINOPHEN\TRAMADOL
     Dosage: PARACETAMOL 325 MG, TRAMADOL 37.5 MG, INCREASED HER USE TO 6-7 TABLETS PER DAY
     Route: 048

REACTIONS (4)
  - Prescription drug used without a prescription [Unknown]
  - Drug dependence [Unknown]
  - Drug withdrawal syndrome [Unknown]
  - Drug abuse [Unknown]
